FAERS Safety Report 4437993-2 (Version None)
Quarter: 2004Q3

REPORT INFORMATION
  Report Type: 
  Country: None (occurrence: None)
  Receive Date: 20040831
  Receipt Date: 20040415
  Transmission Date: 20050211
  Serious: Yes (Other)
  Sender: FDA-Public Use
  Company Number: US-GLAXOSMITHKLINE-A0507267A

PATIENT
  Age: 46 Year
  Sex: Female
  Weight: 54.5 kg

DRUGS (4)
  1. WELLBUTRIN [Suspect]
     Indication: DEPRESSION
     Route: 048
     Dates: start: 20040129, end: 20040408
  2. ULTRAM [Concomitant]
     Indication: HEADACHE
     Dosage: 50MG AS REQUIRED
     Route: 048
  3. FOSAMAX [Concomitant]
  4. TRANXENE [Concomitant]

REACTIONS (5)
  - AMNESIA [None]
  - FATIGUE [None]
  - GRAND MAL CONVULSION [None]
  - HYPOAESTHESIA [None]
  - INCONTINENCE [None]
